FAERS Safety Report 8477669-8 (Version None)
Quarter: 2012Q2

REPORT INFORMATION
  Report Type: 
  Country: None (occurrence: None)
  Receive Date: 20120629
  Receipt Date: 20120625
  Transmission Date: 20120825
  Serious: Yes (Death, Other)
  Sender: FDA-Public Use
  Company Number: GB-B.I. PHARMACEUTICALS,INC./RIDGEFIELD-2012-UK-00516UK

PATIENT
  Sex: Female

DRUGS (3)
  1. FLUTICASONE PROPIONATE/SALMETEROL [Concomitant]
  2. COMBIVENT [Suspect]
     Route: 055
  3. FUROSEMIDE [Concomitant]

REACTIONS (5)
  - MULTI-ORGAN FAILURE [None]
  - OVERDOSE [None]
  - INTESTINAL OBSTRUCTION [None]
  - SEPSIS [None]
  - UMBILICAL HERNIA, OBSTRUCTIVE [None]
